FAERS Safety Report 7828827-4 (Version None)
Quarter: 2011Q4

REPORT INFORMATION
  Report Type: 
  Country: None (occurrence: None)
  Receive Date: 20111020
  Receipt Date: 20110926
  Transmission Date: 20120403
  Serious: Yes (Hospitalization)
  Sender: FDA-Public Use
  Company Number: IT-BAYER-2011-090930

PATIENT
  Age: 72 Year
  Sex: Female

DRUGS (8)
  1. CONDIUREN [Concomitant]
     Dosage: UNK
     Route: 048
     Dates: start: 20110901, end: 20110907
  2. NICETILE [Concomitant]
     Dosage: DAILY DOSE 500 MG
     Route: 048
     Dates: start: 20110901, end: 20110907
  3. CARDICOR [Concomitant]
     Dosage: DAILY DOSE 3.75 MG
     Route: 048
     Dates: start: 20110901, end: 20110907
  4. GASTRO GEL [Concomitant]
     Route: 048
  5. ASPIRIN [Suspect]
     Indication: PLATELET AGGREGATION INHIBITION
     Dosage: 100 MG, QD
     Route: 048
     Dates: start: 20110901, end: 20110907
  6. RAMIPRIL [Concomitant]
     Dosage: DAILY DOSE 10 MG
     Route: 048
     Dates: start: 20110901, end: 20110907
  7. SIMVASTATIN [Concomitant]
     Dosage: DAILY DOSE 20 MG
     Route: 048
     Dates: start: 20110901, end: 20110907
  8. ARIMIDEX [Concomitant]
     Dosage: DAILY DOSE 1 MG
     Route: 048
     Dates: start: 20110901, end: 20110906

REACTIONS (2)
  - DUODENAL ULCER [None]
  - MELAENA [None]
